FAERS Safety Report 5746549-0 (Version None)
Quarter: 2008Q2

REPORT INFORMATION
  Report Type: 
  Country: None (occurrence: None)
  Receive Date: 20080522
  Receipt Date: 20080227
  Transmission Date: 20081010
  Serious: Yes (Other)
  Sender: FDA-Public Use
  Company Number: US-BRISTOL-MYERS SQUIBB COMPANY-14064257

PATIENT
  Age: 81 Year
  Sex: Female
  Weight: 57 kg

DRUGS (12)
  1. CYTOXAN [Suspect]
     Indication: BREAST CANCER
     Dosage: STARTED ON 27-NOV-2007.
     Route: 042
     Dates: start: 20080122
  2. CYTOXAN [Suspect]
     Indication: MULTIPLE MYELOMA
     Dosage: STARTED ON 27-NOV-2007.
     Route: 042
     Dates: start: 20080122
  3. TAXOTERE [Suspect]
     Route: 042
     Dates: start: 20080123
  4. NEULASTA [Suspect]
     Route: 058
     Dates: start: 20080123
  5. KYTRIL [Concomitant]
     Route: 042
     Dates: start: 20080122
  6. DECADRON [Concomitant]
     Route: 042
     Dates: start: 20080122
  7. PEPCID [Concomitant]
     Route: 042
     Dates: start: 20080122
  8. BENADRYL [Concomitant]
     Route: 042
     Dates: start: 20080122
  9. CENTRUM SILVER [Concomitant]
  10. ENABLEX [Concomitant]
  11. ZOFRAN [Concomitant]
  12. ACTONEL [Concomitant]
     Route: 048

REACTIONS (2)
  - PRURITUS [None]
  - URTICARIA [None]
